FAERS Safety Report 25224721 (Version 2)
Quarter: 2025Q2

REPORT INFORMATION
  Report Type: Spontaneous
  Country: JP (occurrence: JP)
  Receive Date: 20250422
  Receipt Date: 20250502
  Transmission Date: 20250716
  Serious: Yes (Hospitalization, Other)
  Sender: BAXTER
  Company Number: JP-shionogi-202500002235

PATIENT
  Age: 56 Year
  Sex: Male
  Weight: 55.1 kg

DRUGS (6)
  1. DOXORUBICIN [Suspect]
     Active Substance: DOXORUBICIN
     Indication: Synovial sarcoma
     Route: 042
     Dates: start: 20250212
  2. IFOSFAMIDE [Suspect]
     Active Substance: IFOSFAMIDE
     Indication: Synovial sarcoma
     Route: 042
     Dates: start: 20250212
  3. MESNA [Suspect]
     Active Substance: MESNA
     Indication: Prophylaxis
     Route: 042
     Dates: start: 20250212
  4. MIYA-BM [Concomitant]
     Active Substance: CLOSTRIDIUM BUTYRICUM SPORES STRAIN M-55
     Indication: Constipation
     Route: 048
     Dates: start: 20250112
  5. CELECOXIB [Concomitant]
     Active Substance: CELECOXIB
     Indication: Headache
     Route: 048
     Dates: start: 20250108
  6. PRIMPERAN [Concomitant]
     Active Substance: METOCLOPRAMIDE HYDROCHLORIDE
     Indication: Nausea
     Route: 042
     Dates: start: 20250216, end: 20250218

REACTIONS (5)
  - Febrile neutropenia [Recovered/Resolved]
  - Neutrophil count decreased [Recovered/Resolved]
  - White blood cell count decreased [Recovered/Resolved]
  - Decreased appetite [Recovered/Resolved]
  - Nausea [Recovered/Resolved]

NARRATIVE: CASE EVENT DATE: 20250213
